FAERS Safety Report 8409621-2 (Version None)
Quarter: 2012Q2

REPORT INFORMATION
  Report Type: 
  Country: None (occurrence: None)
  Receive Date: 20120531
  Receipt Date: 20120531
  Transmission Date: 20120825
  Serious: Yes (Other)
  Sender: FDA-Public Use
  Company Number: None

PATIENT
  Sex: Female
  Weight: 63.5036 kg

DRUGS (1)
  1. PREDNISONE [Suspect]
     Indication: LUNG INFECTION
     Dosage: 2 TABLETS 2 TIMES A DAY
     Dates: start: 20111101, end: 20120401

REACTIONS (1)
  - ALOPECIA [None]
